FAERS Safety Report 9160693 (Version 1)
Quarter: 2013Q1

REPORT INFORMATION
  Report Type: Spontaneous
  Country: DK (occurrence: None)
  Receive Date: 20130222
  Receipt Date: 20130222
  Transmission Date: 20140127
  Serious: Yes (Other)
  Sender: FDA-Public Use
  Company Number: 2013MA001261

PATIENT
  Age: 78 Year
  Sex: Male

DRUGS (8)
  1. METFORMIN HYDROCHLORIDE [Suspect]
     Indication: TYPE 2 DIABETES MELLITUS
  2. PROPRANOLOL [Concomitant]
  3. OMEPRAZOLE [Concomitant]
  4. RAMIPRIL [Concomitant]
  5. SIMVASTATIN [Concomitant]
  6. FELODIPINE [Concomitant]
  7. CO-CODAMOL [Concomitant]
  8. FERROUS FUMARATE [Concomitant]

REACTIONS (4)
  - Anal pruritus [None]
  - Rectal haemorrhage [None]
  - Anorectal discomfort [None]
  - Anorectal discomfort [None]
